FAERS Safety Report 16568925 (Version 1)
Quarter: 2019Q3

REPORT INFORMATION
  Report Type: Spontaneous
  Country: DE (occurrence: DE)
  Receive Date: 20190713
  Receipt Date: 20190713
  Transmission Date: 20191004
  Serious: Yes (Hospitalization)
  Sender: FDA-Public Use
  Company Number: DE-TEVA-2019-DE-1075704

PATIENT
  Age: 74 Year
  Sex: Male
  Weight: 79 kg

DRUGS (19)
  1. LOVASTATIN. [Concomitant]
     Active Substance: LOVASTATIN
     Dosage: 20 MG, 0-0-1/2,
     Route: 048
  2. DIMETINDEN [Concomitant]
     Active Substance: DIMETHINDENE
     Dosage: 4 MG, ON DAY 1 OF CHEMO, SOLUTION FOR INJECTION / INFUSION
     Route: 042
  3. DOXORUBICIN [Suspect]
     Active Substance: DOXORUBICIN
     Dosage: 37.5 MG / M?, SOLUTION FOR INJECTION / INFUSION
     Route: 042
  4. CYCLOPHOSPHAMID [Suspect]
     Active Substance: CYCLOPHOSPHAMIDE
     Dosage: 750 MG / M?, SOLUTION FOR INJECTION / INFUSION
     Route: 042
  5. NEULASTA [Concomitant]
     Active Substance: PEGFILGRASTIM
     Dosage: INJECTION / INFUSION
     Route: 058
  6. RITUXIMAB. [Suspect]
     Active Substance: RITUXIMAB
     Dosage: 375 MG / M?, SOLUTION FOR INJECTION / INFUSION
     Route: 042
  7. ACICLOVIR [Concomitant]
     Active Substance: ACYCLOVIR
     Dosage: 400 MG, 1-1-1-1-1, TABLETTEN
     Route: 048
  8. PARACETAMOL [Concomitant]
     Active Substance: ACETAMINOPHEN
     Dosage: 1000 MG, DAY 1-5 OF CHEMO, TABLETS
     Route: 048
  9. PREDNISON [Concomitant]
     Active Substance: PREDNISONE
     Dosage: 100 MG, DAY 1-5 OF CHEMO, TABLETS
     Route: 048
  10. ALLOPURINOL. [Concomitant]
     Active Substance: ALLOPURINOL
     Dosage: 100 MG, 1-0-0,
     Route: 048
  11. LONQUEX [Concomitant]
     Active Substance: LIPEGFILGRASTIM
     Dosage: ON 10.03.17, SOLUTION FOR INJECTION / INFUSION
     Route: 058
  12. PANTOPRAZOL [Concomitant]
     Active Substance: PANTOPRAZOLE SODIUM
     Dosage: 20 MG, 1-0-0,
     Route: 048
  13. ENZYM-LEFAX [Concomitant]
     Dosage: 100 MG, 0-0-1,
     Route: 048
  14. XIMOVAN [Concomitant]
     Active Substance: ZOPICLONE
     Dosage: 7.5 MG, 0-0-0-1,
     Route: 048
  15. FUROSEMID [Concomitant]
     Active Substance: FUROSEMIDE
     Dosage: 40 MG, 1-0-0,
     Route: 048
  16. TILIDINE/NALOXONE [Concomitant]
     Active Substance: NALOXONE HYDROCHLORIDE\TILIDINE HYDROCHLORIDE
     Dosage: 50 | 4 MG, B.B., SUSTAINED-RELEASE TABLETS
     Route: 048
  17. MCP [Concomitant]
     Active Substance: METOCLOPRAMIDE HYDROCHLORIDE
     Dosage: 10 MG, IBS 3X / DAY, TABLETS
     Route: 048
  18. VINCRISTIN [Suspect]
     Active Substance: VINCRISTINE
     Dosage: 2 MG, SOLUTION FOR INJECTION / INFUSION
     Route: 042
  19. COTRIM FORTE [Concomitant]
     Active Substance: SULFAMETHOXAZOLE\TRIMETHOPRIM
     Dosage: 960 MG, 1-0-1; MO; MI; FR, TABLETTEN
     Route: 048

REACTIONS (5)
  - Cough [Unknown]
  - Dry mouth [Unknown]
  - Vomiting [Unknown]
  - Dizziness [Unknown]
  - Nausea [Unknown]
